FAERS Safety Report 8122226-6 (Version None)
Quarter: 2012Q1

REPORT INFORMATION
  Report Type: 
  Country: None (occurrence: None)
  Receive Date: 20120208
  Receipt Date: 20120130
  Transmission Date: 20120608
  Serious: Yes (Hospitalization)
  Sender: FDA-Public Use
  Company Number: ES-JNJFOC-20111210751

PATIENT
  Sex: Male

DRUGS (3)
  1. XEPLION [Suspect]
     Route: 030
     Dates: start: 20111217, end: 20111217
  2. XEPLION [Suspect]
     Indication: CONDUCT DISORDER
     Route: 030
     Dates: start: 20120117
  3. OXCARBAZEPINE [Concomitant]
     Indication: CONDUCT DISORDER
     Route: 065

REACTIONS (6)
  - INJECTION SITE ERYTHEMA [None]
  - INJECTION SITE INDURATION [None]
  - PYREXIA [None]
  - INJECTION SITE ABSCESS [None]
  - INJECTION SITE PAIN [None]
  - DRUG ADMINISTERED TO PATIENT OF INAPPROPRIATE AGE [None]
